FAERS Safety Report 7819368-9 (Version None)
Quarter: 2011Q4

REPORT INFORMATION
  Report Type: 
  Country: None (occurrence: None)
  Receive Date: 20111018
  Receipt Date: 20110317
  Transmission Date: 20120403
  Serious: No
  Sender: FDA-Public Use
  Company Number: US-ASTRAZENECA-2011SE15368

PATIENT
  Age: 31 Year
  Sex: Female

DRUGS (4)
  1. SYMBICORT [Suspect]
     Indication: ASTHMA
     Dosage: 80 UG, 2 PUFFS TWO TIMES A DAY
     Route: 055
     Dates: start: 20110201
  2. SYMBICORT [Suspect]
     Dosage: 80 UG, 1PUFF TWO TIMES A DAY
     Route: 055
     Dates: end: 20110301
  3. ZYRTEC [Concomitant]
  4. SYNTHROID [Concomitant]

REACTIONS (2)
  - HYPOAESTHESIA [None]
  - TREMOR [None]
